FAERS Safety Report 10356251 (Version 2)
Quarter: 2014Q4

REPORT INFORMATION
  Report Type: Spontaneous
  Country: IT (occurrence: IT)
  Receive Date: 20140801
  Receipt Date: 20141109
  Transmission Date: 20150528
  Serious: Yes (Hospitalization)
  Sender: FDA-Public Use
  Company Number: IT-BRISTOL-MYERS SQUIBB COMPANY-21235213

PATIENT
  Age: 65 Year
  Sex: Male

DRUGS (11)
  1. SEREVENT [Concomitant]
     Active Substance: SALMETEROL XINAFOATE
  2. PAROXETINE [Concomitant]
     Active Substance: PAROXETINE\PAROXETINE HYDROCHLORIDE
  3. NITROGLYCERIN. [Concomitant]
     Active Substance: NITROGLYCERIN
  4. CARDIOASPIRIN [Concomitant]
     Active Substance: ASPIRIN
  5. RIVOTRIL [Concomitant]
     Active Substance: CLONAZEPAM
  6. SPIRIVA [Concomitant]
     Active Substance: TIOTROPIUM BROMIDE MONOHYDRATE
  7. TORVAST [Concomitant]
     Active Substance: ATORVASTATIN
  8. COUMADIN [Suspect]
     Active Substance: WARFARIN SODIUM
     Indication: PROPHYLAXIS
     Route: 048
     Dates: start: 20140204, end: 20140412
  9. FENTANYL. [Concomitant]
     Active Substance: FENTANYL
  10. FLIXOTIDE [Concomitant]
     Active Substance: FLUTICASONE PROPIONATE
  11. BISOPROLOL HEMIFUMARATE [Concomitant]
     Active Substance: BISOPROLOL FUMARATE

REACTIONS (2)
  - International normalised ratio increased [Recovering/Resolving]
  - Anaemia [Recovering/Resolving]

NARRATIVE: CASE EVENT DATE: 20140412
